FAERS Safety Report 16053088 (Version 1)
Quarter: 2019Q1

REPORT INFORMATION
  Report Type: Spontaneous
  Country: US (occurrence: US)
  Receive Date: 20190308
  Receipt Date: 20190308
  Transmission Date: 20190418
  Serious: No
  Sender: FDA-Public Use
  Company Number: US-PERRIGO-18US014462

PATIENT
  Sex: Female
  Weight: 59.86 kg

DRUGS (3)
  1. LEVOTHYROXINE. [Concomitant]
     Active Substance: LEVOTHYROXINE
     Indication: HYPOTHYROIDISM
     Dosage: UNK
     Route: 065
     Dates: start: 1998
  2. BETAMETHASONE DIPROPIONATE. [Suspect]
     Active Substance: BETAMETHASONE DIPROPIONATE
     Indication: RASH
     Dosage: SMALL AMOUNT, QD
     Route: 061
     Dates: start: 201805, end: 2018
  3. KETOCONAZOLE. [Concomitant]
     Active Substance: KETOCONAZOLE
     Indication: SKIN DISORDER
     Dosage: 1 APPLICATION, QD
     Route: 065
     Dates: start: 201805, end: 2018

REACTIONS (2)
  - Inappropriate schedule of product administration [Recovered/Resolved]
  - Hair growth rate abnormal [Not Recovered/Not Resolved]

NARRATIVE: CASE EVENT DATE: 2018
